FAERS Safety Report 17941675 (Version 2)
Quarter: 2021Q1

REPORT INFORMATION
  Report Type: Spontaneous
  Country: US (occurrence: US)
  Receive Date: 20200625
  Receipt Date: 20210122
  Transmission Date: 20210419
  Serious: Yes (Hospitalization, Other)
  Sender: FDA-Public Use
  Company Number: US-SA-2020SA157880

PATIENT
  Age: 29 Year
  Sex: Female
  Weight: 81.6 kg

DRUGS (3)
  1. LEVOTHYROXINE. [Concomitant]
     Active Substance: LEVOTHYROXINE
     Dates: start: 20201212
  2. LEMTRADA [Suspect]
     Active Substance: ALEMTUZUMAB
     Dosage: UNK
     Route: 041
  3. LEMTRADA [Suspect]
     Active Substance: ALEMTUZUMAB
     Dosage: UNK
     Route: 042
     Dates: start: 20201104

REACTIONS (24)
  - Myalgia [Unknown]
  - Initial insomnia [Unknown]
  - Fatigue [Unknown]
  - Autoimmune thyroiditis [Unknown]
  - Hypothyroidism [Unknown]
  - Swelling face [Unknown]
  - Arthralgia [Unknown]
  - Dysphonia [Unknown]
  - Menstruation irregular [Unknown]
  - Hyperthyroidism [Unknown]
  - Hyperhidrosis [Unknown]
  - Menstrual disorder [Unknown]
  - Pregnancy [Unknown]
  - Hair texture abnormal [Unknown]
  - Weight increased [Unknown]
  - Tremor [Unknown]
  - Dry skin [Unknown]
  - Increased appetite [Unknown]
  - Hypohidrosis [Unknown]
  - Constipation [Unknown]
  - Weight decreased [Unknown]
  - Temperature intolerance [Unknown]
  - Muscular weakness [Unknown]
  - Alopecia [Unknown]

NARRATIVE: CASE EVENT DATE: 20201001
